FAERS Safety Report 8553888-7 (Version None)
Quarter: 2012Q3

REPORT INFORMATION
  Report Type: 
  Country: None (occurrence: None)
  Receive Date: 20120731
  Receipt Date: 20120629
  Transmission Date: 20120928
  Serious: Yes (Life-Threatening, Hospitalization)
  Sender: FDA-Public Use
  Company Number: US-MSD-1203USA00623

PATIENT

DRUGS (8)
  1. TEMOZOLOMIDE [Suspect]
     Indication: GLIOBLASTOMA MULTIFORME
     Dosage: 75 MG/M2, QD
     Route: 042
     Dates: start: 20120227
  2. VORINOSTAT-MYCOSIS FUNGOIDES [Suspect]
     Dosage: 400 MG, QD
     Route: 048
     Dates: start: 20120521
  3. TEMOZOLOMIDE [Suspect]
     Dosage: 150 MG/M2, QD
     Route: 048
     Dates: start: 20120521
  4. DEXAMETHASONE [Suspect]
     Route: 048
  5. OLANZAPINE [Suspect]
  6. VORINOSTAT-MYCOSIS FUNGOIDES [Suspect]
     Indication: GLIOBLASTOMA MULTIFORME
     Dosage: 300 MG, UNK
     Route: 048
     Dates: start: 20120227, end: 20120302
  7. VORINOSTAT-MYCOSIS FUNGOIDES [Suspect]
     Dosage: 300 MG, UNK
     Route: 048
     Dates: start: 20120319
  8. MIRTAZAPINE [Suspect]

REACTIONS (2)
  - DEPRESSION [None]
  - SUICIDAL IDEATION [None]
